FAERS Safety Report 10395835 (Version 1)
Quarter: 2014Q3

REPORT INFORMATION
  Report Type: Spontaneous
  Country: US (occurrence: None)
  Receive Date: 20140815
  Receipt Date: 20140815
  Transmission Date: 20150326
  Serious: No
  Sender: FDA-Public Use
  Company Number: None

PATIENT
  Age: 59 Year
  Sex: Female
  Weight: 93.9 kg

DRUGS (1)
  1. VICTOZA [Suspect]
     Active Substance: LIRAGLUTIDE
     Indication: BLOOD GLUCOSE INCREASED
     Dosage: 0.6 MG ONCE DAILY GIVEN INTO/UNDER THE SKIN
     Dates: start: 20140806, end: 20140812

REACTIONS (8)
  - Dizziness [None]
  - Pain [None]
  - Hyperhidrosis [None]
  - Nausea [None]
  - Diarrhoea [None]
  - Malaise [None]
  - Abdominal pain upper [None]
  - Vomiting [None]

NARRATIVE: CASE EVENT DATE: 20140806
